FAERS Safety Report 9781228 (Version 1)
Quarter: 2013Q4

REPORT INFORMATION
  Report Type: Spontaneous
  Country: US (occurrence: None)
  Receive Date: 20131223
  Receipt Date: 20131223
  Transmission Date: 20140711
  Serious: Yes (Other)
  Sender: FDA-Public Use
  Company Number: None

PATIENT
  Sex: 0

DRUGS (2)
  1. ISOSORBIDE MONONITRATE [Suspect]
     Indication: ANGINA PECTORIS
  2. ISOSORBIDE MONONITRATE [Suspect]
     Indication: PROPHYLAXIS

REACTIONS (2)
  - Product packaging issue [None]
  - Product label issue [None]
